FAERS Safety Report 11074002 (Version 1)
Quarter: 2015Q2

REPORT INFORMATION
  Report Type: Spontaneous
  Country: BR (occurrence: BR)
  Receive Date: 20150429
  Receipt Date: 20150429
  Transmission Date: 20150821
  Serious: Yes (Other)
  Sender: FDA-Public Use
  Company Number: BR-PFIZER INC-2015132530

PATIENT
  Age: 80 Year
  Sex: Female
  Weight: 80 kg

DRUGS (11)
  1. ANCORON [Concomitant]
     Active Substance: AMIODARONE HYDROCHLORIDE
     Dosage: 1 DF, UNK
  2. CARVEDILOL. [Concomitant]
     Active Substance: CARVEDILOL
     Indication: CARDIAC DISORDER
     Dosage: 2 TABLETS, DAILY
  3. RIVOTRIL [Concomitant]
     Active Substance: CLONAZEPAM
     Indication: CARDIAC DISORDER
     Dosage: UNK
  4. ALDACTONE [Concomitant]
     Active Substance: SPIRONOLACTONE
     Indication: CARDIAC DISORDER
     Dosage: UNK
  5. ANCORON [Concomitant]
     Active Substance: AMIODARONE HYDROCHLORIDE
     Indication: CARDIAC DISORDER
     Dosage: 2 DF, UNK
  6. LASIX [Concomitant]
     Active Substance: FUROSEMIDE
     Indication: CARDIAC DISORDER
     Dosage: HALF TABLET (20 MG), DAILY
  7. LIPITOR [Suspect]
     Active Substance: ATORVASTATIN CALCIUM
     Dosage: 10 MG, UNK
     Route: 048
  8. ELIQUIS [Concomitant]
     Active Substance: APIXABAN
     Indication: CARDIAC DISORDER
     Dosage: 1 TABLET, DAILY
     Route: 048
     Dates: start: 201407
  9. VASTAREL MR [Concomitant]
     Indication: CARDIAC DISORDER
     Dosage: UNK
  10. CARVEDILOL. [Concomitant]
     Active Substance: CARVEDILOL
     Dosage: 1 TABLET, DAILY
  11. LIPITOR [Suspect]
     Active Substance: ATORVASTATIN CALCIUM
     Indication: CARDIAC DISORDER
     Dosage: 20 MG, UNK
     Route: 048

REACTIONS (9)
  - Feeling abnormal [Unknown]
  - Malaise [Unknown]
  - Arrhythmia [Unknown]
  - Fatigue [Unknown]
  - Condition aggravated [Not Recovered/Not Resolved]
  - Stent malfunction [Unknown]
  - Cardiac disorder [Unknown]
  - Fall [Unknown]
  - Coma [Unknown]

NARRATIVE: CASE EVENT DATE: 2013
